FAERS Safety Report 25493250 (Version 1)
Quarter: 2025Q2

REPORT INFORMATION
  Report Type: Spontaneous
  Country: DE (occurrence: DE)
  Receive Date: 20250630
  Receipt Date: 20250630
  Transmission Date: 20250717
  Serious: Yes (Other)
  Sender: Unknown Manufacturer
  Company Number: DE-MIRUM PHARMACEUTICALS, INC.-DE-MIR-25-00372

PATIENT

DRUGS (1)
  1. LIVMARLI [Suspect]
     Active Substance: MARALIXIBAT CHLORIDE
     Indication: Alagille syndrome
     Dosage: 0.6 MILLILITER, QD
     Route: 065
     Dates: start: 20230123

REACTIONS (1)
  - Liver transplant [Unknown]
